FAERS Safety Report 5288368-8 (Version None)
Quarter: 2007Q1

REPORT INFORMATION
  Report Type: 
  Country: None (occurrence: None)
  Receive Date: 20070116
  Receipt Date: 20060925
  Transmission Date: 20070707
  Serious: No
  Sender: FDA-Public Use
  Company Number: FE2006-0427

PATIENT
  Age: 24 Year
  Sex: Female
  Weight: 64.8644 kg

DRUGS (2)
  1. INTRAUTERINE COPPER CONTRACEPTIVE [Suspect]
     Indication: CONTRACEPTION
     Dosage: INTRA-UTERINE
     Route: 015
     Dates: start: 20050101, end: 20060630
  2. PRENATAL VITAMINS (PRENATAL VITAMINS/01549301/)(PILL) [Concomitant]

REACTIONS (2)
  - UNINTENDED PREGNANCY [None]
  - UTERINE PERFORATION [None]
